FAERS Safety Report 9418665 (Version 1)
Quarter: 2013Q3

REPORT INFORMATION
  Report Type: Spontaneous
  Country: GB (occurrence: GB)
  Receive Date: 20130725
  Receipt Date: 20130725
  Transmission Date: 20140515
  Serious: Yes (Other)
  Sender: FDA-Public Use
  Company Number: GB-009507513-1307GBR012977

PATIENT
  Age: 29 Year
  Sex: Male
  Weight: 113 kg

DRUGS (2)
  1. LORATADINE [Suspect]
     Dosage: UNK
     Route: 048
  2. CETIRIZINE HYDROCHLORIDE [Concomitant]

REACTIONS (2)
  - Presyncope [Recovered/Resolved]
  - Dizziness [Recovered/Resolved]
